FAERS Safety Report 13122675 (Version 1)
Quarter: 2017Q1

REPORT INFORMATION
  Report Type: Spontaneous
  Country: SE (occurrence: SE)
  Receive Date: 20170117
  Receipt Date: 20170117
  Transmission Date: 20170428
  Serious: Yes (Other)
  Sender: FDA-Public Use
  Company Number: SE-TEVA-729599ISR

PATIENT
  Age: 38 Year
  Sex: Female

DRUGS (1)
  1. GABAPENTIN. [Suspect]
     Active Substance: GABAPENTIN

REACTIONS (4)
  - Diplopia [Not Recovered/Not Resolved]
  - Anorgasmia [Not Recovered/Not Resolved]
  - Vertigo [Not Recovered/Not Resolved]
  - Affect lability [Not Recovered/Not Resolved]
